FAERS Safety Report 11561533 (Version 1)
Quarter: 2015Q3

REPORT INFORMATION
  Report Type: Spontaneous
  Country: US (occurrence: US)
  Receive Date: 20150916
  Receipt Date: 20150916
  Transmission Date: 20151125
  Serious: No
  Sender: FDA-Public Use
  Company Number: US-ELI_LILLY_AND_COMPANY-US200810006869

PATIENT
  Age: 81 Year
  Sex: Female

DRUGS (7)
  1. MIACALCIN [Concomitant]
     Active Substance: CALCITONIN SALMON
  2. ADVIL [Concomitant]
     Active Substance: IBUPROFEN
  3. DETROL /01350201/ [Concomitant]
  4. FORTEO [Suspect]
     Active Substance: TERIPARATIDE
     Indication: OSTEOPOROSIS
     Dosage: 20 UG, DAILY (1/D)
     Dates: start: 2006
  5. LASIX [Concomitant]
     Active Substance: FUROSEMIDE
  6. ASA [Concomitant]
     Active Substance: ASPIRIN
     Dosage: 81 MG, UNK
  7. NEXIUM [Concomitant]
     Active Substance: ESOMEPRAZOLE MAGNESIUM

REACTIONS (6)
  - Fall [Recovered/Resolved]
  - Fall [Recovered/Resolved]
  - Corneal transplant [Recovering/Resolving]
  - Traumatic haematoma [Recovering/Resolving]
  - Visual acuity reduced [Recovering/Resolving]
  - Fall [Recovered/Resolved]

NARRATIVE: CASE EVENT DATE: 200610
